FAERS Safety Report 23111143 (Version 1)
Quarter: 2023Q4

REPORT INFORMATION
  Report Type: Spontaneous
  Country: JP (occurrence: JP)
  Receive Date: 20231026
  Receipt Date: 20231026
  Transmission Date: 20240110
  Serious: Yes (Other)
  Sender: FDA-Public Use
  Company Number: JP-JAZZ-2020-JP-016667

PATIENT
  Age: 64 Year
  Sex: Female
  Weight: 55.3 kg

DRUGS (7)
  1. DEFITELIO [Suspect]
     Active Substance: DEFIBROTIDE SODIUM
     Indication: Venoocclusive liver disease
     Dosage: 3 MILLIGRAM/KILOGRAM, QD
     Route: 042
     Dates: start: 20190908, end: 20190910
  2. DEFITELIO [Suspect]
     Active Substance: DEFIBROTIDE SODIUM
     Dosage: 6 MILLIGRAM/KILOGRAM
     Route: 042
     Dates: start: 20190911, end: 20190915
  3. DEFITELIO [Suspect]
     Active Substance: DEFIBROTIDE SODIUM
     Dosage: 12 MILLIGRAM/KILOGRAM
     Route: 042
     Dates: start: 20190916, end: 20190925
  4. DEFITELIO [Suspect]
     Active Substance: DEFIBROTIDE SODIUM
     Dosage: 25 MILLIGRAM/KILOGRAM
     Route: 042
     Dates: start: 20190926, end: 20191004
  5. DEFITELIO [Suspect]
     Active Substance: DEFIBROTIDE SODIUM
     Dosage: 19 MILLIGRAM/KILOGRAM
     Route: 042
     Dates: start: 20191005, end: 20191006
  6. DEFITELIO [Suspect]
     Active Substance: DEFIBROTIDE SODIUM
     Dosage: 12.5 MILLIGRAM/KILOGRAM
     Route: 042
     Dates: start: 20191007, end: 20191007
  7. DEFITELIO [Suspect]
     Active Substance: DEFIBROTIDE SODIUM
     Dosage: 6 MILLIGRAM/KILOGRAM
     Route: 042
     Dates: start: 20191008, end: 20191008

REACTIONS (2)
  - Haemoptysis [Recovering/Resolving]
  - Bronchopulmonary aspergillosis [Unknown]

NARRATIVE: CASE EVENT DATE: 20190101
